FAERS Safety Report 8027873-8 (Version None)
Quarter: 2012Q1

REPORT INFORMATION
  Report Type: 
  Country: None (occurrence: None)
  Receive Date: 20120106
  Receipt Date: 20111229
  Transmission Date: 20120608
  Serious: Yes (Other)
  Sender: FDA-Public Use
  Company Number: CA-JNJFOC-20120100570

PATIENT
  Sex: Male
  Weight: 111 kg

DRUGS (2)
  1. FLAGYL [Concomitant]
     Dosage: DOSE BELIEVED TO BE 500MG TABS
  2. REMICADE [Suspect]
     Indication: CROHN'S DISEASE
     Route: 042
     Dates: start: 20100809

REACTIONS (1)
  - TONSILLAR HYPERTROPHY [None]
